FAERS Safety Report 15327886 (Version 1)
Quarter: 2018Q3

REPORT INFORMATION
  Report Type: Spontaneous
  Country: US (occurrence: US)
  Receive Date: 20180828
  Receipt Date: 20180828
  Transmission Date: 20181010
  Serious: No
  Sender: FDA-Public Use
  Company Number: US-ROCHE-2117329

PATIENT

DRUGS (9)
  1. LOSAR [Concomitant]
  2. ISONIAZIDE [Concomitant]
     Active Substance: ISONIAZID
  3. PROZAC [Concomitant]
     Active Substance: FLUOXETINE HYDROCHLORIDE
  4. LACTOSE [Concomitant]
     Active Substance: LACTOSE
  5. ROCEPHIN [Suspect]
     Active Substance: CEFTRIAXONE SODIUM
     Indication: PRODUCT USED FOR UNKNOWN INDICATION
     Route: 065
  6. TIZANIDINE. [Concomitant]
     Active Substance: TIZANIDINE
  7. MORPHINE [Concomitant]
     Active Substance: MORPHINE
  8. LISINOPRIL. [Concomitant]
     Active Substance: LISINOPRIL
  9. CLONIDINE. [Concomitant]
     Active Substance: CLONIDINE

REACTIONS (1)
  - Hypersensitivity [Unknown]
